FAERS Safety Report 7342077-X (Version None)
Quarter: 2011Q1

REPORT INFORMATION
  Report Type: 
  Country: None (occurrence: None)
  Receive Date: 20110309
  Receipt Date: 20110119
  Transmission Date: 20110831
  Serious: Yes (Hospitalization)
  Sender: FDA-Public Use
  Company Number: JP-ASTRAZENECA-2011SE12329

PATIENT
  Age: 76 Year
  Sex: Female

DRUGS (16)
  1. MEROPEN [Suspect]
     Indication: SEPSIS
     Route: 042
     Dates: start: 20101230, end: 20110111
  2. BERIZYM [Concomitant]
     Route: 048
     Dates: end: 20110112
  3. PRODIF [Concomitant]
     Route: 065
     Dates: start: 20110101, end: 20110105
  4. FULPEN [Concomitant]
     Route: 048
     Dates: start: 20101228, end: 20110112
  5. PRODIF [Concomitant]
     Indication: BACTERAEMIA
     Route: 065
     Dates: start: 20101230, end: 20101231
  6. TPN ELECTROLYTES IN PLASTIC CONTAINER [Concomitant]
     Route: 065
     Dates: start: 20101230, end: 20110108
  7. TAKEPRON [Concomitant]
     Route: 048
     Dates: end: 20110112
  8. GLAKAY [Concomitant]
     Route: 048
     Dates: end: 20110112
  9. BISOLVON [Concomitant]
     Route: 048
     Dates: end: 20101227
  10. BIOFERMIN R [Concomitant]
     Route: 048
     Dates: end: 20110112
  11. MEROPEN [Suspect]
     Indication: DEVICE RELATED INFECTION
     Route: 042
     Dates: start: 20101230, end: 20110111
  12. CEFLONIC [Concomitant]
     Indication: CHOLECYSTITIS
     Route: 065
     Dates: start: 20110112
  13. ELNEOPA NO2 [Concomitant]
     Route: 065
     Dates: start: 20101224, end: 20101230
  14. MEROPEN [Suspect]
     Indication: PYREXIA
     Route: 042
     Dates: start: 20101230, end: 20110111
  15. KANAMYCIN MONOSULFATE [Concomitant]
     Route: 048
     Dates: end: 20110112
  16. ELNEOPA NO2 [Concomitant]
     Route: 065
     Dates: start: 20110109

REACTIONS (2)
  - LIVER DISORDER [None]
  - HEPATIC FUNCTION ABNORMAL [None]
